FAERS Safety Report 12762630 (Version 2)
Quarter: 2016Q3

REPORT INFORMATION
  Report Type: Spontaneous
  Country: None (occurrence: CN)
  Receive Date: 20160920
  Receipt Date: 20160926
  Transmission Date: 20161109
  Serious: Yes (Other)
  Sender: FDA-Public Use
  Company Number: CN-MERCK KGAA-1057481

PATIENT

DRUGS (1)
  1. NOVOTHYROX [Suspect]
     Active Substance: LEVOTHYROXINE SODIUM

REACTIONS (6)
  - Pain in extremity [None]
  - Myasthenia gravis [None]
  - Peripheral swelling [None]
  - Rheumatic disorder [None]
  - Rheumatoid arthritis [None]
  - Musculoskeletal stiffness [None]
